FAERS Safety Report 17138047 (Version 2)
Quarter: 2019Q4

REPORT INFORMATION
  Report Type: Spontaneous
  Country: US (occurrence: US)
  Receive Date: 20191211
  Receipt Date: 20191216
  Transmission Date: 20200122
  Serious: No
  Sender: FDA-Public Use
  Company Number: US-BRISTOL-MYERS SQUIBB COMPANY-BMS-2019-117871

PATIENT
  Sex: Female
  Weight: 63.5 kg

DRUGS (2)
  1. ELIQUIS [Suspect]
     Active Substance: APIXABAN
     Indication: DEEP VEIN THROMBOSIS
     Dosage: 5 MILLIGRAM, BID
     Route: 048
     Dates: start: 20190719
  2. PROLIA [Concomitant]
     Active Substance: DENOSUMAB
     Indication: PRODUCT USED FOR UNKNOWN INDICATION
     Dosage: UNK
     Route: 065

REACTIONS (13)
  - Skin ulcer [Unknown]
  - Malaise [Unknown]
  - Arthralgia [Unknown]
  - Joint swelling [Unknown]
  - Urinary tract infection [Unknown]
  - Nausea [Unknown]
  - Pain [Unknown]
  - Bronchitis [Unknown]
  - Vision blurred [Unknown]
  - Dizziness [Unknown]
  - Somnolence [Unknown]
  - Sinusitis [Unknown]
  - Blood urine present [Unknown]
